FAERS Safety Report 8669083 (Version 2)
Quarter: 2013Q4

REPORT INFORMATION
  Report Type: Spontaneous
  Country: US (occurrence: US)
  Receive Date: 20120717
  Receipt Date: 20131101
  Transmission Date: 20140711
  Serious: No
  Sender: FDA-Public Use
  Company Number: US-009507513-1207USA001432

PATIENT
  Sex: 0

DRUGS (1)
  1. JANUVIA [Suspect]
     Dosage: UNK
     Dates: start: 201112

REACTIONS (2)
  - Cyst [Unknown]
  - Diabetes mellitus inadequate control [Unknown]
